FAERS Safety Report 4578273-4 (Version None)
Quarter: 2005Q1

REPORT INFORMATION
  Report Type: 
  Country: None (occurrence: None)
  Receive Date: 20050201
  Receipt Date: 20050201
  Transmission Date: 20050727
  Serious: Yes (Death, Life-Threatening)
  Sender: FDA-Public Use
  Company Number: None

PATIENT
  Age: 73 Year
  Sex: Male
  Weight: 66 kg

DRUGS (7)
  1. RETAVASE ^PROTOCOL^ [Suspect]
     Indication: MYOCARDIAL INFARCTION
     Dosage: 10 UNITS FOR 2 MIN
     Dates: start: 20030129
  2. HEPARIN [Suspect]
     Indication: MYOCARDIAL INFARCTION
     Dosage: 5000 + BOLUS FOLLOW W/1000 UNITS , 1 HOUR
     Dates: start: 20030129
  3. ASPIRIN [Suspect]
     Dosage: 2 TABS  X 1
     Dates: start: 20030129
  4. NITROPASTE [Concomitant]
  5. LOPRESSOR IV [Concomitant]
  6. ROLAIDS [Concomitant]
  7. NITROGLYCERIN [Concomitant]

REACTIONS (11)
  - ACUTE MYOCARDIAL INFARCTION [None]
  - COMA [None]
  - DIABETES MELLITUS [None]
  - DIABETES MELLITUS INADEQUATE CONTROL [None]
  - FEEDING DISORDER [None]
  - HAEMORRHAGIC STROKE [None]
  - HYDROCEPHALUS [None]
  - HYPERTENSION [None]
  - INTRAVENTRICULAR HAEMORRHAGE [None]
  - PNEUMONIA [None]
  - RENAL FAILURE ACUTE [None]
